FAERS Safety Report 8461078-1 (Version None)
Quarter: 2012Q2

REPORT INFORMATION
  Report Type: 
  Country: None (occurrence: None)
  Receive Date: 20120625
  Receipt Date: 20120614
  Transmission Date: 20120825
  Serious: No
  Sender: FDA-Public Use
  Company Number: US-BIOGENIDEC-2012BI014999

PATIENT
  Age: 62 Year
  Sex: Female

DRUGS (3)
  1. AVONEX [Suspect]
     Route: 030
     Dates: end: 20120501
  2. AVONEX [Suspect]
     Dates: start: 20120501
  3. AVONEX [Suspect]
     Indication: MULTIPLE SCLEROSIS
     Route: 030
     Dates: start: 20000511, end: 20120409

REACTIONS (3)
  - ROTATOR CUFF SYNDROME [None]
  - MUSCLE RUPTURE [None]
  - MUSCULOSKELETAL PAIN [None]
